FAERS Safety Report 10643387 (Version 1)
Quarter: 2014Q4

REPORT INFORMATION
  Report Type: Spontaneous
  Country: US (occurrence: None)
  Receive Date: 20141121
  Receipt Date: 20141121
  Transmission Date: 20150529
  Serious: No
  Sender: FDA-Public Use
  Company Number: 163-10004-14090926

PATIENT
  Age: 50 Year
  Sex: Female
  Weight: 86.18 kg

DRUGS (11)
  1. OTEZLA [Suspect]
     Active Substance: APREMILAST
     Indication: PSORIATIC ARTHROPATHY
     Route: 048
     Dates: start: 20140901
  2. CYMBALTA [Concomitant]
     Active Substance: DULOXETINE HYDROCHLORIDE
  3. XANAX [Concomitant]
     Active Substance: ALPRAZOLAM
  4. NEXIUM [Concomitant]
     Active Substance: ESOMEPRAZOLE MAGNESIUM
  5. TRILEPTAL [Concomitant]
     Active Substance: OXCARBAZEPINE
  6. SYNTHROID (LEVOTHYROXNE SODIUM) [Concomitant]
  7. ENBREL [Concomitant]
     Active Substance: ETANERCEPT
  8. WELLBUTRIN [Concomitant]
     Active Substance: BUPROPION HYDROCHLORIDE
  9. XANAX XR (ALPRAZOLAM) [Concomitant]
  10. NUVIGIL [Concomitant]
     Active Substance: ARMODAFINIL
  11. DOMPERIDONE [Concomitant]
     Active Substance: DOMPERIDONE

REACTIONS (5)
  - Diarrhoea [None]
  - Depression [None]
  - Nausea [None]
  - Headache [None]
  - Irritability [None]

NARRATIVE: CASE EVENT DATE: 20140903
